FAERS Safety Report 7270758-5 (Version None)
Quarter: 2011Q1

REPORT INFORMATION
  Report Type: 
  Country: None (occurrence: None)
  Receive Date: 20110202
  Receipt Date: 20110120
  Transmission Date: 20110831
  Serious: Yes (Hospitalization, Other)
  Sender: FDA-Public Use
  Company Number: US-ELI_LILLY_AND_COMPANY-US201006002639

PATIENT
  Sex: Female

DRUGS (13)
  1. FORTEO [Suspect]
     Indication: OSTEOPOROSIS
     Dosage: 20 UG, DAILY (1/D)
     Dates: start: 20100126
  2. METOPROLOL [Concomitant]
  3. POTASSIUM [Concomitant]
  4. CALTRATE + D [Concomitant]
  5. ALBUTEROL [Concomitant]
  6. PHENERGAN HCL [Concomitant]
  7. PERCOCET [Concomitant]
  8. DARVOCET-N 100 [Concomitant]
  9. AMBIEN [Concomitant]
  10. SYNTHROID [Concomitant]
  11. AMITRIPTYLINE HCL [Concomitant]
  12. VITAMIN D [Concomitant]
  13. ADVAIR [Concomitant]

REACTIONS (11)
  - DYSPNOEA [None]
  - EATING DISORDER [None]
  - PAIN [None]
  - PAIN IN EXTREMITY [None]
  - BONE PAIN [None]
  - MALAISE [None]
  - BODY HEIGHT DECREASED [None]
  - RIB FRACTURE [None]
  - INJECTION SITE PAIN [None]
  - WEIGHT DECREASED [None]
  - INSOMNIA [None]
